FAERS Safety Report 6574600-7 (Version None)
Quarter: 2010Q1

REPORT INFORMATION
  Report Type: 
  Country: None (occurrence: None)
  Receive Date: 20100209
  Receipt Date: 20100203
  Transmission Date: 20100710
  Serious: Yes (Hospitalization, Other)
  Sender: FDA-Public Use
  Company Number: DE-WYE-G05412610

PATIENT
  Sex: Female

DRUGS (2)
  1. TREVILOR [Suspect]
     Dosage: UNKNOWN
     Route: 048
  2. MORPHINE [Suspect]
     Indication: INTERVERTEBRAL DISC PROTRUSION

REACTIONS (2)
  - INTERVERTEBRAL DISC PROTRUSION [None]
  - SEROTONIN SYNDROME [None]
